FAERS Safety Report 15322936 (Version 1)
Quarter: 2018Q3

REPORT INFORMATION
  Report Type: Spontaneous
  Country: FR (occurrence: FR)
  Receive Date: 20180827
  Receipt Date: 20180827
  Transmission Date: 20181010
  Serious: Yes (Hospitalization)
  Sender: FDA-Public Use
  Company Number: FR-TEVA-2018-FR-947844

PATIENT
  Sex: Male
  Weight: 80 kg

DRUGS (4)
  1. AKINETON L.P. 4 MG, COMPRIM? ENROB? ? LIB?RATION PROLONG?E [Concomitant]
     Indication: SCHIZOAFFECTIVE DISORDER
     Route: 048
     Dates: start: 1991
  2. MODECATE 25 MG/ 1ML, SOLUTION INJECTABLE I.M. EN AMPOULE [Concomitant]
     Indication: SCHIZOAFFECTIVE DISORDER
     Route: 030
     Dates: start: 1991
  3. TELMISARTAN. [Suspect]
     Active Substance: TELMISARTAN
     Indication: HYPERTENSION
     Route: 048
     Dates: end: 20160210
  4. TERALITHE [Suspect]
     Active Substance: LITHIUM CARBONATE
     Indication: SCHIZOAFFECTIVE DISORDER
     Route: 048
     Dates: start: 1991

REACTIONS (4)
  - Hypokalaemia [Recovered/Resolved]
  - Hypernatraemia [Recovered/Resolved]
  - Renal failure [Recovered/Resolved with Sequelae]
  - Diabetes insipidus [Recovered/Resolved]

NARRATIVE: CASE EVENT DATE: 201501
